FAERS Safety Report 17343519 (Version 1)
Quarter: 2020Q1

REPORT INFORMATION
  Report Type: Spontaneous
  Country: US (occurrence: US)
  Receive Date: 20200129
  Receipt Date: 20200129
  Transmission Date: 20200409
  Serious: No
  Sender: FDA-Public Use
  Company Number: US-ALLERGAN-1937772US

PATIENT
  Sex: Female
  Weight: 56.69 kg

DRUGS (2)
  1. BOTOX [Suspect]
     Active Substance: ONABOTULINUMTOXINA
     Indication: SKIN WRINKLING
     Dosage: 60 UNITS, SINGLE
  2. ADVIL [Concomitant]
     Active Substance: IBUPROFEN
     Indication: MIGRAINE
     Route: 048

REACTIONS (4)
  - Eye contusion [Unknown]
  - Therapeutic response decreased [Unknown]
  - Swelling face [Not Recovered/Not Resolved]
  - Brow ptosis [Recovered/Resolved]

NARRATIVE: CASE EVENT DATE: 2019
